FAERS Safety Report 8202290-6 (Version None)
Quarter: 2012Q1

REPORT INFORMATION
  Report Type: 
  Country: None (occurrence: None)
  Receive Date: 20120312
  Receipt Date: 20120306
  Transmission Date: 20120608
  Serious: Yes (Life-Threatening, Other)
  Sender: FDA-Public Use
  Company Number: US-CELGENEUS-163-21880-11123618

PATIENT
  Sex: Male

DRUGS (6)
  1. MELPHALAN HYDROCHLORIDE [Concomitant]
     Dosage: 6 MILLIGRAM
     Route: 065
     Dates: start: 20110201, end: 20110325
  2. REVLIMID [Suspect]
     Indication: MULTIPLE MYELOMA
     Dosage: 10 MILLIGRAM
     Route: 048
     Dates: start: 20111001, end: 20111201
  3. VELCADE [Concomitant]
     Dosage: 2 MILLIGRAM
     Route: 065
     Dates: start: 20101117, end: 20110415
  4. INFERON [Concomitant]
     Route: 065
     Dates: start: 19960101, end: 19980101
  5. COUMADIN [Concomitant]
     Route: 065
  6. PAMIDRONATE DISODIUM [Concomitant]
     Dosage: 90 MILLIGRAM
     Route: 065
     Dates: start: 20110322

REACTIONS (4)
  - BONE MARROW FAILURE [None]
  - CONTUSION [None]
  - ANAEMIA [None]
  - THROMBOCYTOPENIA [None]
